FAERS Safety Report 4556542-1 (Version None)
Quarter: 2005Q1

REPORT INFORMATION
  Report Type: 
  Country: None (occurrence: None)
  Receive Date: 20050114
  Receipt Date: 20040917
  Transmission Date: 20050727
  Serious: Yes (Death)
  Sender: FDA-Public Use
  Company Number: 0002810

PATIENT
  Age: 4 Year
  Sex: Female
  Weight: 16.5 kg

DRUGS (5)
  1. INTRALIPID 20% [Suspect]
     Indication: MALABSORPTION
     Dosage: 200 ML/- DAILY/ INTRAVENOUS IN
     Route: 042
     Dates: start: 20040429, end: 20040826
  2. DEXTROSE 5% [Concomitant]
  3. TROPHAMINE [Concomitant]
  4. MULTI-VITAMINS [Concomitant]
  5. ZANTAC [Concomitant]

REACTIONS (3)
  - CATHETER RELATED INFECTION [None]
  - DISSEMINATED INTRAVASCULAR COAGULATION [None]
  - LIVER FUNCTION TEST ABNORMAL [None]
